FAERS Safety Report 8520849-3 (Version None)
Quarter: 2012Q2

REPORT INFORMATION
  Report Type: 
  Country: None (occurrence: None)
  Receive Date: 20120409
  Receipt Date: 20120228
  Transmission Date: 20120825
  Serious: Yes (Other)
  Sender: FDA-Public Use
  Company Number: PHEH2012US001972

PATIENT
  Age: 69 Year
  Sex: Female

DRUGS (6)
  1. BYSTOLIC (NEBIVOLOL HYDROCHLORIDE), 10 MG [Concomitant]
  2. VALTURNA [Suspect]
     Dosage: 1 DF (150/160MG), QD
  3. ATIVAN [Concomitant]
  4. AMLODIPINE [Concomitant]
  5. HYDROCHLOROTHIAZIDE [Concomitant]
  6. NEXIUM [Concomitant]

REACTIONS (5)
  - BLOOD PRESSURE SYSTOLIC INCREASED [None]
  - DIZZINESS [None]
  - MIGRAINE [None]
  - FATIGUE [None]
  - HEART RATE INCREASED [None]
